FAERS Safety Report 4554720-9 (Version None)
Quarter: 2005Q1

REPORT INFORMATION
  Report Type: 
  Country: None (occurrence: None)
  Receive Date: 20041228
  Receipt Date: 20040702
  Transmission Date: 20050727
  Serious: Yes (Death)
  Sender: FDA-Public Use
  Company Number: ALMO2004021

PATIENT
  Age: 37 Year
  Sex: Female

DRUGS (3)
  1. ALMOGRAN [Suspect]
     Indication: MIGRAINE
     Dosage: 12.5 MG PO
     Route: 048
     Dates: start: 20041109, end: 20040406
  2. LEVONORGESTREL AND ETHINYL ESTRADIOL [Concomitant]
  3. TYLEX [Concomitant]

REACTIONS (1)
  - ACUTE LYMPHOCYTIC LEUKAEMIA [None]
